FAERS Safety Report 13637544 (Version 1)
Quarter: 2017Q2

REPORT INFORMATION
  Report Type: Spontaneous
  Country: GB (occurrence: GB)
  Receive Date: 20170609
  Receipt Date: 20170609
  Transmission Date: 20170830
  Serious: Yes (Other)
  Sender: FDA-Public Use
  Company Number: GB-B. BRAUN MEDICAL INC.-2021744

PATIENT
  Age: 42 Year
  Sex: Male

DRUGS (2)
  1. EPINEPHRINE. [Suspect]
     Active Substance: EPINEPHRINE
     Route: 004
  2. LIDOCAINE. [Suspect]
     Active Substance: LIDOCAINE
     Indication: LOCAL ANAESTHESIA
     Route: 004

REACTIONS (8)
  - Loss of consciousness [Recovered/Resolved]
  - Hypoaesthesia [Recovered/Resolved]
  - Respiratory arrest [Recovered/Resolved]
  - Feeling hot [Recovered/Resolved]
  - Respiratory depression [Recovered/Resolved]
  - Feeling cold [Recovered/Resolved]
  - Dizziness [None]
  - Dizziness [Recovered/Resolved]
